FAERS Safety Report 11932268 (Version 1)
Quarter: 2016Q1

REPORT INFORMATION
  Report Type: Spontaneous
  Country: GR (occurrence: GR)
  Receive Date: 20160120
  Receipt Date: 20160120
  Transmission Date: 20160526
  Serious: Yes (Disabling)
  Sender: FDA-Public Use
  Company Number: GR-TAKEDA-2016TJP001174

PATIENT
  Age: 70 Year
  Sex: Male
  Weight: 75 kg

DRUGS (2)
  1. LAPRAZOL [Suspect]
     Active Substance: LANSOPRAZOLE
     Indication: GASTROOESOPHAGEAL REFLUX DISEASE
     Dosage: 30 MG, QD
     Route: 048
     Dates: start: 2012, end: 2014
  2. LAPRAZOL [Suspect]
     Active Substance: LANSOPRAZOLE
     Dosage: 15 MG, QD
     Route: 048
     Dates: start: 2014, end: 2015

REACTIONS (3)
  - Achlorhydria [Recovered/Resolved with Sequelae]
  - Abnormal faeces [Recovered/Resolved with Sequelae]
  - Flatulence [Recovered/Resolved with Sequelae]

NARRATIVE: CASE EVENT DATE: 2013
